FAERS Safety Report 10264128 (Version 2)
Quarter: 2014Q2

REPORT INFORMATION
  Report Type: Spontaneous
  Country: PL (occurrence: PL)
  Receive Date: 20140627
  Receipt Date: 20140630
  Transmission Date: 20141212
  Serious: Yes (Other)
  Sender: FDA-Public Use
  Company Number: PL-ROCHE-1425391

PATIENT
  Sex: Male

DRUGS (1)
  1. MABTHERA [Suspect]
     Indication: NEOPLASM MALIGNANT
     Route: 065

REACTIONS (2)
  - Malabsorption [Unknown]
  - Gastrointestinal toxicity [Unknown]
